FAERS Safety Report 16173339 (Version 1)
Quarter: 2019Q2

REPORT INFORMATION
  Report Type: Spontaneous
  Country: US (occurrence: US)
  Receive Date: 20190305
  Receipt Date: 20190305
  Transmission Date: 20190711
  Serious: No
  Sender: FDA-Public Use
  Company Number: None

PATIENT
  Age: 46 Year
  Sex: Female

DRUGS (1)
  1. TACROLIMUS CAP 1MG [Suspect]
     Active Substance: TACROLIMUS
     Indication: RENAL TRANSPLANT
     Dosage: OTHER
     Route: 048
     Dates: start: 201902

REACTIONS (3)
  - Product dispensing error [None]
  - Product selection error [None]
  - Transcription medication error [None]

NARRATIVE: CASE EVENT DATE: 20190305
